FAERS Safety Report 14820614 (Version 1)
Quarter: 2018Q2

REPORT INFORMATION
  Report Type: Spontaneous
  Country: US (occurrence: US)
  Receive Date: 20180427
  Receipt Date: 20180427
  Transmission Date: 20180711
  Serious: Yes (Other)
  Sender: FDA-Public Use
  Company Number: US-PFIZER INC-2018173872

PATIENT

DRUGS (10)
  1. PROTONIX [Suspect]
     Active Substance: PANTOPRAZOLE SODIUM
     Dosage: UNK
     Dates: start: 2001, end: 2005
  2. NEXIUM [Suspect]
     Active Substance: ESOMEPRAZOLE MAGNESIUM
     Dosage: UNK
     Dates: start: 2001, end: 2005
  3. NEXIUM 24HR [Suspect]
     Active Substance: ESOMEPRAZOLE MAGNESIUM
     Dosage: UNK
     Dates: end: 2005
  4. PREVACID 24 HR [Suspect]
     Active Substance: LANSOPRAZOLE
     Dosage: UNK
     Dates: start: 2001, end: 2005
  5. PRILOSEC [Suspect]
     Active Substance: OMEPRAZOLE MAGNESIUM
     Dosage: UNK
     Dates: start: 2001, end: 2005
  6. PRILOSEC OTC [Suspect]
     Active Substance: OMEPRAZOLE MAGNESIUM
     Dosage: UNK
     Dates: start: 2001, end: 2005
  7. DEXILANT [Suspect]
     Active Substance: DEXLANSOPRAZOLE
     Dosage: UNK
     Dates: start: 2001, end: 2005
  8. PREVACID [Suspect]
     Active Substance: LANSOPRAZOLE
     Dosage: UNK
     Dates: start: 2001, end: 2005
  9. VIMOVO [Suspect]
     Active Substance: ESOMEPRAZOLE MAGNESIUM\NAPROXEN
     Dosage: UNK
     Dates: start: 2001, end: 2005
  10. ACIPHEX [Suspect]
     Active Substance: RABEPRAZOLE SODIUM
     Dosage: UNK
     Dates: start: 2001, end: 2005

REACTIONS (2)
  - Renal failure [Unknown]
  - Chronic kidney disease [Unknown]
